FAERS Safety Report 10387936 (Version 2)
Quarter: 2014Q3

REPORT INFORMATION
  Report Type: Spontaneous
  Country: FR (occurrence: None)
  Receive Date: 20140813
  Receipt Date: 20140827
  Transmission Date: 20150326
  Serious: Yes (Hospitalization)
  Sender: FDA-Public Use
  Company Number: AUR-APL-2014-08582

PATIENT
  Age: 78 Year
  Sex: Female

DRUGS (10)
  1. ATACAND [Concomitant]
     Active Substance: CANDESARTAN CILEXETIL
  2. KALEORID (POTASSIUM CHLORIDE) [Concomitant]
     Active Substance: POTASSIUM CHLORIDE
  3. KARDEGIC [Concomitant]
     Active Substance: ASPIRIN LYSINE
  4. BISOPROLOL [Suspect]
     Active Substance: BISOPROLOL
     Indication: CARDIAC FAILURE
     Dosage: UNK
     Route: 048
     Dates: start: 20140103, end: 20140104
  5. LASILIX (FUROSEMIDE) [Concomitant]
     Active Substance: FUROSEMIDE
  6. NEBIVOLOL [Suspect]
     Active Substance: NEBIVOLOL
     Indication: CARDIAC FAILURE CHRONIC
     Route: 048
     Dates: end: 20140102
  7. NEBILOX (NEBIVOLOL HYDROCHLORIDE) (1MG, TABLET) (NEBIVOLOL HYDROCHLORIDE) [Concomitant]
     Active Substance: NEBIVOLOL HYDROCHLORIDE
  8. FUROSEMIDE. [Suspect]
     Active Substance: FUROSEMIDE
     Indication: CARDIAC FAILURE
     Route: 042
     Dates: start: 20140105, end: 20140108
  9. RISORDAN (ISOSORBIDE DINITRATE) [Concomitant]
  10. CORDARONE [Suspect]
     Active Substance: AMIODARONE HYDROCHLORIDE
     Indication: ATRIAL FIBRILLATION
     Route: 048
     Dates: start: 20101209, end: 20140104

REACTIONS (7)
  - Chest discomfort [None]
  - Hypokalaemia [None]
  - Electrocardiogram QT prolonged [None]
  - Cardiopulmonary failure [None]
  - Atrial fibrillation [None]
  - Hypothyroidism [None]
  - Ischaemia [None]

NARRATIVE: CASE EVENT DATE: 20140103
